FAERS Safety Report 20858368 (Version 3)
Quarter: 2024Q1

REPORT INFORMATION
  Report Type: Spontaneous
  Country: US (occurrence: US)
  Receive Date: 20220521
  Receipt Date: 20240311
  Transmission Date: 20240410
  Serious: Yes (Hospitalization, Other)
  Sender: FDA-Public Use
  Company Number: US-TEVA-2022-US-2027393

PATIENT
  Age: 61 Year
  Sex: Male

DRUGS (12)
  1. TREPROSTINIL [Suspect]
     Active Substance: TREPROSTINIL
     Indication: Pulmonary arterial hypertension
     Dosage: DOSAGE: 10 MG/ML
     Route: 042
     Dates: start: 202202
  2. TREPROSTINIL [Suspect]
     Active Substance: TREPROSTINIL
     Indication: Pulmonary arterial hypertension
     Dosage: DOSAGE TEXT: 66.1 NG/KG/MIN, CONTINUOUS
     Route: 042
     Dates: start: 20220205
  3. TREPROSTINIL [Suspect]
     Active Substance: TREPROSTINIL
     Indication: Pulmonary arterial hypertension
     Dosage: DOSAGE TEXT: 54NG/KG/MIN, CONTINUOUS
     Route: 042
     Dates: start: 202302
  4. TREPROSTINIL [Suspect]
     Active Substance: TREPROSTINIL
     Indication: Pulmonary arterial hypertension
     Dosage: DOSAGE TEXT: 80 NG/KG/MIN, CONTINUOUS
     Route: 042
     Dates: start: 202202
  5. TREPROSTINIL [Suspect]
     Active Substance: TREPROSTINIL
     Indication: Pulmonary arterial hypertension
     Dosage: DOSAGE TEXT: REDUCE HIS PUMP RATE TO 40 ML/24HR, STILL USING 8 MLS OF TREPROSTINIL 2.5MG/ML WITH ...
     Route: 042
     Dates: start: 202202
  6. TREPROSTINIL [Suspect]
     Active Substance: TREPROSTINIL
     Indication: Pulmonary arterial hypertension
     Dosage: DOSAGE TEXT: 73 NG/KG/MIN, CONTINUOUS
     Route: 042
     Dates: start: 20220208
  7. TREPROSTINIL [Suspect]
     Active Substance: TREPROSTINIL
     Indication: Pulmonary arterial hypertension
     Dosage: DOSAGE TEXT: MIX TO 3ML OF TREPROSTINIL 10 MG/ML FOR A DOSE OF 79 NG/KG/MIN (PUMP RATE 32 ML/24HR).
     Route: 042
     Dates: start: 20230109
  8. TREPROSTINIL [Suspect]
     Active Substance: TREPROSTINIL
     Indication: Pulmonary arterial hypertension
     Dosage: DOSAGE TEXT: MIXING WITH 2ML OF TREPROSTINIL 10MG/ML BUT KEPT THE PUMP RATE AT 32 ML/24HR, DOSE I...
     Route: 042
     Dates: start: 20230111
  9. TREPROSTINIL [Suspect]
     Active Substance: TREPROSTINIL
     Indication: Pulmonary arterial hypertension
     Dosage: DOSAGE TEXT: 91NG/KG/MIN
     Route: 042
  10. TREPROSTINIL [Suspect]
     Active Substance: TREPROSTINIL
     Indication: Pulmonary arterial hypertension
     Dosage: DOSAGE TEXT: 94NG/KG/MIN, CONTINUOUS
     Route: 042
     Dates: start: 202201
  11. TREPROSTINIL [Suspect]
     Active Substance: TREPROSTINIL
     Indication: Pulmonary arterial hypertension
     Dosage: DOSAGE TEXT: 100NG/KG/MIN, CONTINUOUS
     Route: 042
     Dates: start: 202302
  12. TREPROSTINIL [Suspect]
     Active Substance: TREPROSTINIL
     Indication: Pulmonary arterial hypertension
     Dosage: 101 NG/KG/MIN, CONTINUOUS
     Route: 042
     Dates: start: 202202

REACTIONS (23)
  - Cellulitis [Recovered/Resolved]
  - Blood glucose decreased [Unknown]
  - Infection [Recovering/Resolving]
  - Vomiting [Recovered/Resolved]
  - Headache [Recovered/Resolved]
  - Diarrhoea [Recovered/Resolved]
  - Infusion site pain [Unknown]
  - Infusion site haemorrhage [Unknown]
  - Dyspnoea [Recovering/Resolving]
  - Incorrect dose administered [Unknown]
  - Ocular hyperaemia [Unknown]
  - Pain in extremity [Unknown]
  - Arthralgia [Unknown]
  - Osteoarthritis [Unknown]
  - Muscular weakness [Unknown]
  - Rash [Not Recovered/Not Resolved]
  - Skin exfoliation [Not Recovered/Not Resolved]
  - Dry skin [Not Recovered/Not Resolved]
  - Wound drainage [Not Recovered/Not Resolved]
  - Scratch [Not Recovered/Not Resolved]
  - Atrial flutter [Unknown]
  - Nausea [Recovered/Resolved]
  - Breast pain [Unknown]

NARRATIVE: CASE EVENT DATE: 20220301
